FAERS Safety Report 9162725 (Version 2)
Quarter: 2013Q2

REPORT INFORMATION
  Report Type: Spontaneous
  Country: US (occurrence: None)
  Receive Date: 20130207
  Receipt Date: 20130506
  Transmission Date: 20140414
  Serious: Yes (Hospitalization, Other)
  Sender: FDA-Public Use
  Company Number: ADR-2013-00184

PATIENT
  Sex: Female

DRUGS (3)
  1. BACLOFEN UNKNOWN (BACLOFEN INTRATHECAL) [Suspect]
     Indication: PAIN
     Dosage: INTRATHECAL.
  2. BACLOFEN UNKNOWN (BACLOFEN INTRATHECAL) [Suspect]
     Indication: PAIN
     Dosage: INTRATHECAL.
  3. MORPHINE [Concomitant]

REACTIONS (11)
  - Dyspepsia [None]
  - Malaise [None]
  - Mobility decreased [None]
  - Pain [None]
  - Gait disturbance [None]
  - Medical device discomfort [None]
  - Neoplasm [None]
  - Hypophagia [None]
  - Anxiety [None]
  - Abdominal pain [None]
  - Drug ineffective [None]
